FAERS Safety Report 6301084-6 (Version None)
Quarter: 2009Q3

REPORT INFORMATION
  Report Type: 
  Country: None (occurrence: None)
  Receive Date: 20090807
  Receipt Date: 20090728
  Transmission Date: 20100115
  Serious: Yes (Hospitalization, Other)
  Sender: FDA-Public Use
  Company Number: PHHY2009CN31284

PATIENT
  Age: 70 Year
  Sex: Male
  Weight: 56 kg

DRUGS (3)
  1. SANDOSTATIN [Suspect]
     Indication: PANCREATITIS ACUTE
     Dosage: 0.5 MG PER 12 HOUR
     Route: 041
  2. SANDOSTATIN [Suspect]
     Dosage: 0.1 MG
     Route: 058
     Dates: start: 20090728
  3. ANTIBIOTICS [Concomitant]

REACTIONS (2)
  - OLIGURIA [None]
  - RENAL FAILURE [None]
